FAERS Safety Report 8839401 (Version 1)
Quarter: 2012Q4

REPORT INFORMATION
  Report Type: Spontaneous
  Country: US (occurrence: None)
  Receive Date: 20121012
  Receipt Date: 20121012
  Transmission Date: 20130627
  Serious: Yes (Hospitalization)
  Sender: FDA-Public Use
  Company Number: None

PATIENT
  Age: 84 Year
  Sex: Male
  Weight: 100 kg

DRUGS (9)
  1. WARFARIN [Suspect]
     Indication: ATRIAL FIBRILLATION
     Dosage: 2.5 mg 6 days per week
     Route: 048
  2. SIMVASTATIN [Concomitant]
  3. ALLOPURINOL [Concomitant]
  4. BISACODYL [Concomitant]
  5. FOLIC ACID [Concomitant]
  6. FUROSEMIDE [Concomitant]
  7. METOPROLOL [Concomitant]
  8. OMEPRAZOLE [Concomitant]
  9. OXYBUTYNIN [Concomitant]

REACTIONS (6)
  - Pyrexia [None]
  - Haematuria [None]
  - International normalised ratio increased [None]
  - Anaemia [None]
  - Sepsis [None]
  - Urinary tract infection [None]
